FAERS Safety Report 19367711 (Version 1)
Quarter: 2021Q2

REPORT INFORMATION
  Report Type: Spontaneous
  Country: US (occurrence: US)
  Receive Date: 20210602
  Receipt Date: 20210602
  Transmission Date: 20210717
  Serious: No
  Sender: FDA-Public Use
  Company Number: US-ROCHE-2599506

PATIENT
  Sex: Male
  Weight: 90.8 kg

DRUGS (8)
  1. PRANDIN (UNITED STATES) [Concomitant]
     Indication: DIABETES MELLITUS
     Route: 048
  2. VALIUM [Suspect]
     Active Substance: DIAZEPAM
     Indication: INSOMNIA
     Dosage: AT BEDTIME
     Route: 048
  3. GABAPENTIN. [Concomitant]
     Active Substance: GABAPENTIN
  4. PROPRANOLOL [Concomitant]
     Active Substance: PROPRANOLOL HYDROCHLORIDE
     Route: 048
  5. PEPCID [Concomitant]
     Active Substance: FAMOTIDINE
  6. OCREVUS [Suspect]
     Active Substance: OCRELIZUMAB
     Indication: PRIMARY PROGRESSIVE MULTIPLE SCLEROSIS
     Dosage: ONGOING YES
     Route: 042
     Dates: start: 20191121
  7. KLONOPIN [Suspect]
     Active Substance: CLONAZEPAM
     Indication: FALL
     Route: 065
  8. LIPITOR [Concomitant]
     Active Substance: ATORVASTATIN CALCIUM
     Route: 048

REACTIONS (9)
  - Intentional product use issue [Unknown]
  - Pain [Unknown]
  - Glucose tolerance impaired [Unknown]
  - Weight increased [Unknown]
  - Hypertension [Unknown]
  - Mood altered [Unknown]
  - Off label use [Unknown]
  - Muscle spasms [Unknown]
  - Stress [Unknown]
